FAERS Safety Report 23946331 (Version 1)
Quarter: 2024Q2

REPORT INFORMATION
  Report Type: Spontaneous
  Country: GB (occurrence: GB)
  Receive Date: 20240606
  Receipt Date: 20240606
  Transmission Date: 20240716
  Serious: Yes (Other)
  Sender: FDA-Public Use
  Company Number: None

PATIENT
  Age: 30 Year
  Sex: Female
  Weight: 66 kg

DRUGS (3)
  1. MINOXIDIL [Suspect]
     Active Substance: MINOXIDIL
     Indication: Hair growth abnormal
     Dosage: 2.5 MG, 1X/DAY
     Dates: start: 20240416
  2. TOFACITINIB [Concomitant]
     Active Substance: TOFACITINIB
     Indication: Hair growth abnormal
     Dates: start: 20231202
  3. URSODIOL [Concomitant]
     Active Substance: URSODIOL
     Indication: Liver function test abnormal
     Dates: start: 20231124

REACTIONS (7)
  - Palpitations [Recovering/Resolving]
  - Anxiety [Recovering/Resolving]
  - Hypotension [Recovering/Resolving]
  - Panic attack [Recovering/Resolving]
  - Feeling cold [Recovering/Resolving]
  - Tremor [Recovering/Resolving]
  - Off label use [Unknown]

NARRATIVE: CASE EVENT DATE: 20240416
